FAERS Safety Report 6054846-7 (Version None)
Quarter: 2009Q1

REPORT INFORMATION
  Report Type: 
  Country: None (occurrence: None)
  Receive Date: 20090128
  Receipt Date: 20090116
  Transmission Date: 20090719
  Serious: Yes (Hospitalization, Other)
  Sender: FDA-Public Use
  Company Number: FR-PFIZER INC-2009157625

PATIENT

DRUGS (1)
  1. SUNITINIB MALATE [Suspect]

REACTIONS (2)
  - ENCEPHALOPATHY [None]
  - HYPERTENSION [None]
